FAERS Safety Report 11699670 (Version 3)
Quarter: 2015Q4

REPORT INFORMATION
  Report Type: Spontaneous
  Country: IT (occurrence: IT)
  Receive Date: 20151105
  Receipt Date: 20151110
  Transmission Date: 20160304
  Serious: Yes (Other)
  Sender: FDA-Public Use
  Company Number: IT-ROCHE-1653657

PATIENT
  Age: 36 Year
  Sex: Male

DRUGS (4)
  1. ABILIFY [Suspect]
     Active Substance: ARIPIPRAZOLE
     Indication: PRODUCT USED FOR UNKNOWN INDICATION
     Dosage: THREE BLISTER PACKS OF ARPIPRAZOLE
     Route: 048
     Dates: start: 20150910, end: 20150910
  2. DEPAKIN [Suspect]
     Active Substance: VALPROATE SODIUM
     Indication: PRODUCT USED FOR UNKNOWN INDICATION
     Dosage: THREE BLISTER PACKS OF VALPROIC ACID
     Route: 048
     Dates: start: 20150910, end: 20150910
  3. ZOLOFT [Suspect]
     Active Substance: SERTRALINE HYDROCHLORIDE
     Indication: PRODUCT USED FOR UNKNOWN INDICATION
     Dosage: THREE BLISTER PACKS OF SERTRALINE HYDROCHLORIDE
     Route: 048
     Dates: start: 20150910, end: 20150910
  4. RIVOTRIL [Suspect]
     Active Substance: CLONAZEPAM
     Indication: PRODUCT USED FOR UNKNOWN INDICATION
     Dosage: ENTIRE BLISTER PACK OF CLONAZEPAM.
     Route: 048
     Dates: start: 20150910, end: 20150910

REACTIONS (3)
  - Sopor [Recovering/Resolving]
  - Overdose [Unknown]
  - Intentional self-injury [Unknown]

NARRATIVE: CASE EVENT DATE: 20150910
